FAERS Safety Report 13849129 (Version 1)
Quarter: 2017Q3

REPORT INFORMATION
  Report Type: Report from Study
  Country: None (occurrence: BR)
  Receive Date: 20170809
  Receipt Date: 20170809
  Transmission Date: 20171127
  Serious: Yes (Hospitalization, Other)
  Sender: FDA-Public Use
  Company Number: BR-ABBVIE-16K-020-1615722-00

PATIENT
  Age: 39 Year
  Sex: Male
  Weight: 67 kg

DRUGS (6)
  1. HUMIRA [Suspect]
     Active Substance: ADALIMUMAB
     Indication: ANKYLOSING SPONDYLITIS
     Route: 058
     Dates: start: 20140201, end: 201606
  2. HUMIRA [Suspect]
     Active Substance: ADALIMUMAB
     Route: 058
     Dates: start: 201608
  3. ATENOLOL. [Concomitant]
     Active Substance: ATENOLOL
     Indication: HYPERTENSION
     Route: 048
     Dates: start: 2012
  4. PREDNISONE. [Concomitant]
     Active Substance: PREDNISONE
     Indication: PRODUCT USED FOR UNKNOWN INDICATION
  5. BROMOPRIDE [Concomitant]
     Active Substance: BROMOPRIDE
     Indication: PRODUCT USED FOR UNKNOWN INDICATION
  6. HIPOFOL [Concomitant]
     Indication: PRODUCT USED FOR UNKNOWN INDICATION

REACTIONS (18)
  - Intestinal obstruction [Unknown]
  - Abdominal pain [Recovering/Resolving]
  - Memory impairment [Recovering/Resolving]
  - Intestinal fistula [Unknown]
  - Nausea [Recovering/Resolving]
  - Malnutrition [Recovered/Resolved]
  - Crohn^s disease [Recovering/Resolving]
  - Constipation [Not Recovered/Not Resolved]
  - Hypophagia [Recovering/Resolving]
  - Joint swelling [Recovering/Resolving]
  - Weight decreased [Recovered/Resolved]
  - Gastrointestinal inflammation [Recovering/Resolving]
  - Faecal vomiting [Recovered/Resolved]
  - Dizziness postural [Recovering/Resolving]
  - Weight decreased [Recovering/Resolving]
  - Retching [Unknown]
  - Vomiting [Recovering/Resolving]
  - Peripheral swelling [Recovering/Resolving]

NARRATIVE: CASE EVENT DATE: 2015
